FAERS Safety Report 13100515 (Version 2)
Quarter: 2017Q3

REPORT INFORMATION
  Report Type: Spontaneous
  Country: AU (occurrence: AU)
  Receive Date: 20170110
  Receipt Date: 20170706
  Transmission Date: 20171127
  Serious: Yes (Other)
  Sender: FDA-Public Use
  Company Number: AU-STRIDES ARCOLAB LIMITED-2016SP020951

PATIENT

DRUGS (3)
  1. TRIESENCE [Concomitant]
     Active Substance: TRIAMCINOLONE ACETONIDE
     Indication: CATARACT OPERATION
     Dosage: UNK
     Route: 065
  2. VISCOELASTIC SUBSTANCES [Interacting]
     Active Substance: DEVICE
     Indication: CATARACT OPERATION
     Dosage: UNK
     Route: 031
  3. VANCOMYCIN [Suspect]
     Active Substance: VANCOMYCIN
     Indication: PROPHYLAXIS
     Dosage: 1 MG/ 0.1 ML, INTRACAMERAL
     Route: 031

REACTIONS (10)
  - Retinal vascular occlusion [Recovered/Resolved]
  - Type III immune complex mediated reaction [Unknown]
  - Anterior chamber disorder [Recovered/Resolved]
  - Visual impairment [Recovered/Resolved]
  - Retinal vasculitis [Recovered/Resolved]
  - Retinal ischaemia [Recovered/Resolved]
  - Retinal haemorrhage [Recovered/Resolved]
  - Drug interaction [Unknown]
  - Subretinal fluid [Recovered/Resolved]
  - Pupillary reflex impaired [Recovered/Resolved]
